FAERS Safety Report 22116877 (Version 1)
Quarter: 2023Q1

REPORT INFORMATION
  Report Type: Report from Study
  Country: RO (occurrence: RO)
  Receive Date: 20230320
  Receipt Date: 20230320
  Transmission Date: 20230417
  Serious: Yes (Hospitalization)
  Sender: FDA-Public Use
  Company Number: RO-ABBVIE-4139711

PATIENT
  Age: 67 Year
  Sex: Female

DRUGS (4)
  1. METHOTREXATE [Suspect]
     Active Substance: METHOTREXATE
     Indication: Rheumatoid arthritis
     Dosage: 1 DOSAGE FORM, QW,PRIOR TO HUMIRA THERAPY
     Route: 058
  2. HUMIRA [Suspect]
     Active Substance: ADALIMUMAB
     Indication: Rheumatoid arthritis
     Dosage: 40 MILLIGRAM, Q2W
     Route: 058
     Dates: start: 20170517
  3. HUMIRA [Suspect]
     Active Substance: ADALIMUMAB
     Dosage: 40 MG,Q2W,LAST ADMINISTRATION WAS 19-SEP-2022
     Route: 058
     Dates: start: 20220919
  4. ALFA D [Concomitant]
     Indication: Product used for unknown indication
     Dosage: UNK,1 TABLET PRIOR TO HUMIRA THERAPY
     Route: 048

REACTIONS (9)
  - Thyroidectomy [Recovered/Resolved]
  - Lip swelling [Recovering/Resolving]
  - Eye swelling [Recovering/Resolving]
  - Hypertension [Unknown]
  - Swelling face [Recovering/Resolving]
  - Palpitations [Recovered/Resolved]
  - Panic attack [Recovered/Resolved]
  - Mood altered [Not Recovered/Not Resolved]
  - Vomiting [Not Recovered/Not Resolved]

NARRATIVE: CASE EVENT DATE: 20190101
